FAERS Safety Report 16282373 (Version 1)
Quarter: 2019Q2

REPORT INFORMATION
  Report Type: Spontaneous
  Country: US (occurrence: US)
  Receive Date: 20190507
  Receipt Date: 20190507
  Transmission Date: 20190711
  Serious: No
  Sender: FDA-Public Use
  Company Number: US-009507513-1904USA010833

PATIENT
  Age: 60 Year
  Sex: Female

DRUGS (2)
  1. CARVEDILOL. [Concomitant]
     Active Substance: CARVEDILOL
     Dosage: 6.25 MILLIGRAM, BID
  2. PRINIVIL [Suspect]
     Active Substance: LISINOPRIL
     Indication: PROPHYLAXIS
     Dosage: 10 MILLIGRAM, QD
     Route: 048

REACTIONS (1)
  - Product use in unapproved indication [Unknown]
